FAERS Safety Report 6626832-7 (Version None)
Quarter: 2010Q1

REPORT INFORMATION
  Report Type: 
  Country: None (occurrence: None)
  Receive Date: 20100308
  Receipt Date: 20100302
  Transmission Date: 20100710
  Serious: Yes (Hospitalization)
  Sender: FDA-Public Use
  Company Number: 2010SP013045

PATIENT
  Age: 45 Year
  Sex: Female

DRUGS (4)
  1. PEG-INTRON [Suspect]
     Indication: HEPATITIS C VIRUS TEST
     Dosage: 105 MCG; QW; SC
     Route: 058
     Dates: start: 20090708, end: 20090806
  2. REBETOL [Suspect]
     Indication: HEPATITIS C VIRUS TEST
     Dosage: 1000 MG; QD; PO
     Route: 048
     Dates: start: 20090708, end: 20090805
  3. LETROX [Concomitant]
  4. EUTHYROX [Concomitant]

REACTIONS (15)
  - ALANINE AMINOTRANSFERASE ABNORMAL [None]
  - APHTHOUS STOMATITIS [None]
  - ASPARTATE AMINOTRANSFERASE ABNORMAL [None]
  - DEPRESSION [None]
  - EAR PAIN [None]
  - FACIAL PARESIS [None]
  - HAEMATOCRIT DECREASED [None]
  - HAEMOGLOBIN DECREASED [None]
  - HEADACHE [None]
  - LEUKOPENIA [None]
  - LYMPHADENOPATHY [None]
  - ODYNOPHAGIA [None]
  - OROPHARYNGEAL PAIN [None]
  - RED BLOOD CELL COUNT DECREASED [None]
  - THROMBOCYTOPENIA [None]
